FAERS Safety Report 14783832 (Version 4)
Quarter: 2019Q1

REPORT INFORMATION
  Report Type: Spontaneous
  Country: US (occurrence: US)
  Receive Date: 20180420
  Receipt Date: 20190315
  Transmission Date: 20190417
  Serious: Yes (Other)
  Sender: FDA-Public Use
  Company Number: US-ASTRAZENECA-2018SE49047

PATIENT
  Age: 25754 Day
  Sex: Male
  Weight: 53.1 kg

DRUGS (35)
  1. PROTONIX [Suspect]
     Active Substance: PANTOPRAZOLE SODIUM
     Route: 065
     Dates: start: 198909, end: 201606
  2. TRIMOX [Concomitant]
     Active Substance: AMOXICILLIN
  3. PRILOSEC OTC [Suspect]
     Active Substance: OMEPRAZOLE MAGNESIUM
     Route: 048
     Dates: start: 198909, end: 201606
  4. PREVACID [Suspect]
     Active Substance: LANSOPRAZOLE
     Route: 065
     Dates: start: 200810, end: 200810
  5. GABAPENTIN. [Concomitant]
     Active Substance: GABAPENTIN
  6. FINASTERIDE. [Concomitant]
     Active Substance: FINASTERIDE
  7. ZOVIRAX [Concomitant]
     Active Substance: ACYCLOVIR
  8. CYANOCOBALAM [Concomitant]
     Active Substance: CYANOCOBALAMIN
  9. AMLODIPINE BESYLATE. [Concomitant]
     Active Substance: AMLODIPINE BESYLATE
     Dates: start: 20140911
  10. NEXIUM [Suspect]
     Active Substance: ESOMEPRAZOLE MAGNESIUM
     Route: 048
     Dates: start: 198909, end: 201606
  11. DEXAMETHASONE. [Concomitant]
     Active Substance: DEXAMETHASONE
  12. LISINOPRIL. [Concomitant]
     Active Substance: LISINOPRIL
  13. TRAZODONE [Concomitant]
     Active Substance: TRAZODONE HYDROCHLORIDE
     Dates: start: 20140108
  14. NEXIUM 24HR [Suspect]
     Active Substance: ESOMEPRAZOLE MAGNESIUM
     Route: 048
     Dates: start: 198909, end: 201606
  15. PRILOSEC [Suspect]
     Active Substance: OMEPRAZOLE MAGNESIUM
     Route: 048
     Dates: start: 198909, end: 201606
  16. DEXILANT [Suspect]
     Active Substance: DEXLANSOPRAZOLE
     Route: 065
     Dates: start: 198909, end: 201606
  17. OXYCODONE [Concomitant]
     Active Substance: OXYCODONE
  18. AZITHROMYCIN ANHYDROUS. [Concomitant]
     Active Substance: AZITHROMYCIN ANHYDROUS
  19. CEPHALEXIN. [Concomitant]
     Active Substance: CEPHALEXIN
  20. TRIAMCINOLON [Concomitant]
  21. TRAMADOL. [Concomitant]
     Active Substance: TRAMADOL
  22. PREVACID 24 HR [Suspect]
     Active Substance: LANSOPRAZOLE
     Route: 065
     Dates: start: 198909, end: 201606
  23. VENLAFAXINE [Concomitant]
     Active Substance: VENLAFAXINE HYDROCHLORIDE
  24. ACYCLOVIR. [Concomitant]
     Active Substance: ACYCLOVIR
  25. BENZONATATE. [Concomitant]
     Active Substance: BENZONATATE
  26. PROPRANOLOL [Concomitant]
     Active Substance: PROPRANOLOL HYDROCHLORIDE
     Dates: start: 20140907
  27. PRILOSEC [Suspect]
     Active Substance: OMEPRAZOLE MAGNESIUM
     Route: 048
     Dates: start: 20050713, end: 20160129
  28. PREVACID [Suspect]
     Active Substance: LANSOPRAZOLE
     Route: 065
     Dates: start: 198909, end: 201606
  29. RANITIDIN [Concomitant]
     Active Substance: RANITIDINE HYDROCHLORIDE
  30. CIMETIDINE [Concomitant]
     Active Substance: CIMETIDINE
  31. CLONAZEPAM. [Concomitant]
     Active Substance: CLONAZEPAM
  32. PRILOSEC [Suspect]
     Active Substance: OMEPRAZOLE MAGNESIUM
     Route: 048
     Dates: start: 200810, end: 200810
  33. LISINOPRIL. [Concomitant]
     Active Substance: LISINOPRIL
  34. ALPRAZOLAM. [Concomitant]
     Active Substance: ALPRAZOLAM
  35. AVODART [Concomitant]
     Active Substance: DUTASTERIDE

REACTIONS (5)
  - Chronic kidney disease [Unknown]
  - Renal failure [Unknown]
  - Renal injury [Unknown]
  - Acute kidney injury [Unknown]
  - Chronic kidney disease-mineral and bone disorder [Unknown]

NARRATIVE: CASE EVENT DATE: 20050713
